FAERS Safety Report 23242755 (Version 1)
Quarter: 2023Q4

REPORT INFORMATION
  Report Type: Spontaneous
  Country: IN (occurrence: IN)
  Receive Date: 20231129
  Receipt Date: 20231129
  Transmission Date: 20240109
  Serious: Yes (Life-Threatening, Hospitalization, Other)
  Sender: FDA-Public Use
  Company Number: IN-MLMSERVICE-20231117-4660260-1

PATIENT
  Age: 18 Year
  Sex: Male

DRUGS (1)
  1. MINOXIDIL [Suspect]
     Active Substance: MINOXIDIL
     Indication: Accidental exposure to product
     Dosage: 40 ML
     Route: 048

REACTIONS (5)
  - Shock [Recovering/Resolving]
  - Cardiac failure [Recovering/Resolving]
  - Pulmonary oedema [Recovering/Resolving]
  - Accidental exposure to product [Recovering/Resolving]
  - Respiratory failure [Recovering/Resolving]
